FAERS Safety Report 15533470 (Version 1)
Quarter: 2018Q4

REPORT INFORMATION
  Report Type: Spontaneous
  Country: JP (occurrence: JP)
  Receive Date: 20181019
  Receipt Date: 20181019
  Transmission Date: 20190205
  Serious: Yes (Death, Hospitalization)
  Sender: FDA-Public Use
  Company Number: JP-BAYER-2018-189913

PATIENT
  Age: 89 Year
  Sex: Female

DRUGS (4)
  1. HEPARIN [Interacting]
     Active Substance: HEPARIN SODIUM
  2. BAYASPIRIN 100 MG [Suspect]
     Active Substance: ASPIRIN
     Dosage: 200MG DAILY
  3. PREDNISOLONE. [Interacting]
     Active Substance: PREDNISOLONE
  4. CLOPIDOGREL [Interacting]
     Active Substance: CLOPIDOGREL BISULFATE
     Dosage: 200MG DAILY

REACTIONS (3)
  - Subarachnoid haemorrhage [Fatal]
  - Epistaxis [None]
  - Labelled drug-drug interaction medication error [Fatal]
